FAERS Safety Report 12408555 (Version 1)
Quarter: 2016Q2

REPORT INFORMATION
  Report Type: Report from Study
  Country: US (occurrence: US)
  Receive Date: 20160526
  Receipt Date: 20160526
  Transmission Date: 20160815
  Serious: No
  Sender: FDA-Public Use
  Company Number: GXBR2015US002870

PATIENT
  Sex: Male

DRUGS (3)
  1. SOMATROPIN [Suspect]
     Active Substance: SOMATROPIN
     Dosage: 0.031 MG/KG, QD
     Route: 058
     Dates: start: 20120816
  2. SOMATROPIN [Suspect]
     Active Substance: SOMATROPIN
     Dosage: 0.027 MG/KG, UNK
     Route: 058
     Dates: end: 20140221
  3. SOMATROPIN [Suspect]
     Active Substance: SOMATROPIN
     Indication: PRODUCT USED FOR UNKNOWN INDICATION
     Dosage: 0.028 MG/KG, QD
     Route: 058

REACTIONS (2)
  - Insulin-like growth factor increased [Not Recovered/Not Resolved]
  - Pain [Not Recovered/Not Resolved]

NARRATIVE: CASE EVENT DATE: 20130312
